FAERS Safety Report 5127552-0 (Version None)
Quarter: 2006Q4

REPORT INFORMATION
  Report Type: 
  Country: None (occurrence: None)
  Receive Date: 20061011
  Receipt Date: 20060929
  Transmission Date: 20070319
  Serious: Yes (Other)
  Sender: FDA-Public Use
  Company Number: 14871

PATIENT
  Age: 37 Year
  Sex: Male

DRUGS (2)
  1. AMIODARONE HCL [Suspect]
     Indication: ARRHYTHMOGENIC RIGHT VENTRICULAR DYSPLASIA
     Dosage: 100 MG ALT_DAYS; UNK
     Dates: start: 19920201
  2. AMIODARONE HCL [Suspect]
     Indication: ARRHYTHMOGENIC RIGHT VENTRICULAR DYSPLASIA
     Dosage: 200 MG ALT_DAYS, UNK
     Dates: start: 19920201

REACTIONS (6)
  - ANTI-THYROID ANTIBODY POSITIVE [None]
  - FATIGUE [None]
  - GOITRE [None]
  - HYPERTHYROIDISM [None]
  - HYPOTHYROIDISM [None]
  - PALPITATIONS [None]
